FAERS Safety Report 4268705-3 (Version None)
Quarter: 2004Q1

REPORT INFORMATION
  Report Type: 
  Country: None (occurrence: None)
  Receive Date: 20040109
  Receipt Date: 20031219
  Transmission Date: 20041129
  Serious: Yes (Other)
  Sender: FDA-Public Use
  Company Number: JP_030100328

PATIENT
  Age: 62 Year
  Sex: Male
  Weight: 58 kg

DRUGS (6)
  1. ZYPREXA [Suspect]
     Indication: SCHIZOPHRENIA, CATATONIC TYPE
     Dosage: 10 MG/DAY
     Dates: start: 20021120, end: 20030117
  2. ORAP [Concomitant]
  3. ARTANE [Concomitant]
  4. LEXOTAN (BROMAZEPAM) [Concomitant]
  5. METLIGINE (MIDODRINE HYDROCHLORIDE) [Concomitant]
  6. CABAGIN-U TAB. (VITAMIN U) [Concomitant]

REACTIONS (11)
  - ABNORMAL BEHAVIOUR [None]
  - ANXIETY [None]
  - DEMENTIA [None]
  - DISORIENTATION [None]
  - DISTURBANCE IN SOCIAL BEHAVIOUR [None]
  - DYSPHAGIA [None]
  - EYE ROLLING [None]
  - INSOMNIA [None]
  - INTENTIONAL SELF-INJURY [None]
  - RESTLESSNESS [None]
  - SPEECH DISORDER [None]
